FAERS Safety Report 5510265-0 (Version None)
Quarter: 2007Q4

REPORT INFORMATION
  Report Type: 
  Country: None (occurrence: None)
  Receive Date: 20071030
  Receipt Date: 20061019
  Transmission Date: 20080405
  Serious: Yes (Hospitalization, Other)
  Sender: FDA-Public Use
  Company Number: HQWYE378120OCT06

PATIENT
  Sex: Female
  Weight: 77.63 kg

DRUGS (2)
  1. PREMARIN [Suspect]
     Indication: HOT FLUSH
     Dosage: 1.25MG DAILY, ORAL
     Route: 048
     Dates: start: 19970101, end: 20060801
  2. BENICAR [Concomitant]

REACTIONS (1)
  - THROMBOSIS [None]
